FAERS Safety Report 7404868-6 (Version None)
Quarter: 2011Q2

REPORT INFORMATION
  Report Type: 
  Country: None (occurrence: None)
  Receive Date: 20110411
  Receipt Date: 20110329
  Transmission Date: 20111010
  Serious: Yes (Hospitalization, Other)
  Sender: FDA-Public Use
  Company Number: FR-JNJFOC-20110400680

PATIENT
  Sex: Male

DRUGS (8)
  1. HALDOL [Suspect]
     Route: 048
  2. VALIUM [Suspect]
     Indication: PRODUCT USED FOR UNKNOWN INDICATION
     Route: 065
  3. XANAX [Suspect]
     Indication: ANXIETY
     Dosage: 2 MG DAILY (VARIABLE DOSE: AT MORE OR LESS 0.5 MG DAILY).
     Route: 048
  4. PARKINANE [Concomitant]
     Indication: PROPHYLAXIS
     Route: 065
  5. HALDOL [Suspect]
     Indication: PSYCHOTIC DISORDER
     Route: 048
  6. HALDOL [Suspect]
     Route: 048
  7. TERALITHE [Suspect]
     Indication: PSYCHOTIC DISORDER
     Route: 048
  8. PARKINANE [Concomitant]
     Route: 065

REACTIONS (7)
  - DELUSION [None]
  - GAIT DISTURBANCE [None]
  - SALIVARY HYPERSECRETION [None]
  - AFFECT LABILITY [None]
  - EXTRAPYRAMIDAL DISORDER [None]
  - ANXIETY [None]
  - OVERDOSE [None]
